FAERS Safety Report 11850466 (Version 1)
Quarter: 2015Q4

REPORT INFORMATION
  Report Type: Spontaneous
  Country: US (occurrence: US)
  Receive Date: 20151218
  Receipt Date: 20151218
  Transmission Date: 20160305
  Serious: No
  Sender: FDA-Public Use
  Company Number: US-JNJFOC-20151200588

PATIENT
  Age: 4 Decade
  Sex: Female

DRUGS (2)
  1. MOTRIN IB [Suspect]
     Active Substance: IBUPROFEN
     Indication: INFLUENZA
     Route: 048
  2. MOTRIN IB [Suspect]
     Active Substance: IBUPROFEN
     Indication: PYREXIA
     Route: 048

REACTIONS (3)
  - Hypoaesthesia [Recovered/Resolved]
  - Off label use [Recovered/Resolved]
  - Product use issue [Recovered/Resolved]
